FAERS Safety Report 7213621-8 (Version None)
Quarter: 2010Q4

REPORT INFORMATION
  Report Type: 
  Country: None (occurrence: None)
  Receive Date: 20101229
  Receipt Date: 20101217
  Transmission Date: 20110411
  Serious: Yes (Hospitalization)
  Sender: FDA-Public Use
  Company Number: 024014

PATIENT
  Sex: Female
  Weight: 48.5 kg

DRUGS (6)
  1. KEPPRA [Suspect]
     Indication: PROPHYLAXIS
     Dosage: (250 MG BID ORAL)
     Route: 048
     Dates: start: 20101101
  2. LIPITOR [Concomitant]
  3. LOPRESSOR [Concomitant]
  4. ENALAPRIL [Concomitant]
  5. GUARIDAN NICOTINE PATCHES [Concomitant]
  6. HEPARIN [Concomitant]

REACTIONS (17)
  - ABNORMAL BEHAVIOUR [None]
  - AGGRESSION [None]
  - ANGER [None]
  - ASTHENIA [None]
  - BALANCE DISORDER [None]
  - CEREBRAL HAEMORRHAGE [None]
  - CEREBROVASCULAR ACCIDENT [None]
  - CHROMATURIA [None]
  - COGNITIVE DISORDER [None]
  - COORDINATION ABNORMAL [None]
  - DIPLOPIA [None]
  - FALL [None]
  - HALLUCINATION [None]
  - HEADACHE [None]
  - INJURY [None]
  - MEMORY IMPAIRMENT [None]
  - PARANOIA [None]
